FAERS Safety Report 10392321 (Version 2)
Quarter: 2015Q1

REPORT INFORMATION
  Report Type: Spontaneous
  Country: GB (occurrence: GB)
  Receive Date: 20140819
  Receipt Date: 20150326
  Transmission Date: 20150720
  Serious: Yes (Life-Threatening, Other)
  Sender: FDA-Public Use
  Company Number: GB-RANBAXY-2014RR-84399

PATIENT
  Age: 17 Year
  Sex: Female

DRUGS (2)
  1. 25I-NBOME [Suspect]
     Active Substance: 25I-NBOME
     Indication: SUBSTANCE USE
     Dosage: 2500 ?G, SINGLE DOSE TAKEN
  2. SERTRALINE [Suspect]
     Active Substance: SERTRALINE HYDROCHLORIDE
     Indication: ANXIETY
     Dosage: 50 MG, DAILY
     Route: 048

REACTIONS (4)
  - Dyskinesia [Recovered/Resolved with Sequelae]
  - Hyperhidrosis [Recovered/Resolved with Sequelae]
  - Visual impairment [Recovered/Resolved with Sequelae]
  - Palpitations [Recovered/Resolved with Sequelae]
